FAERS Safety Report 13616260 (Version 1)
Quarter: 2017Q2

REPORT INFORMATION
  Report Type: Spontaneous
  Country: US (occurrence: US)
  Receive Date: 20170606
  Receipt Date: 20170606
  Transmission Date: 20170830
  Serious: No
  Sender: FDA-Public Use
  Company Number: US-TEVA-746448ACC

PATIENT
  Sex: Female

DRUGS (1)
  1. MICON VAG SUPP [Suspect]
     Active Substance: MICONAZOLE
     Dates: start: 20170301

REACTIONS (1)
  - Polymenorrhoea [Unknown]

NARRATIVE: CASE EVENT DATE: 20170302
